FAERS Safety Report 5311505-3 (Version None)
Quarter: 2007Q2

REPORT INFORMATION
  Report Type: 
  Country: None (occurrence: None)
  Receive Date: 20070430
  Receipt Date: 20070425
  Transmission Date: 20071010
  Serious: Yes (Other)
  Sender: FDA-Public Use
  Company Number: US-GLAXOSMITHKLINE-A0648736A

PATIENT

DRUGS (1)
  1. FLOLAN [Suspect]
     Indication: PULMONARY HYPERTENSION
     Dosage: 4NGKM UNKNOWN
     Route: 042

REACTIONS (5)
  - ANURIA [None]
  - BLOOD CHLORIDE INCREASED [None]
  - HYPERCAPNIA [None]
  - HYPOTENSION [None]
  - RESPIRATORY ACIDOSIS [None]
